FAERS Safety Report 11064352 (Version 1)
Quarter: 2015Q2

REPORT INFORMATION
  Report Type: Spontaneous
  Country: US (occurrence: US)
  Receive Date: 20150424
  Receipt Date: 20150424
  Transmission Date: 20150821
  Serious: Yes (Hospitalization)
  Sender: FDA-Public Use
  Company Number: US-SA-2015SA052399

PATIENT
  Age: 64 Year
  Sex: Female

DRUGS (3)
  1. SOLOSTAR [Concomitant]
     Active Substance: DEVICE
     Dosage: DOSE:30 UNIT(S)
     Dates: start: 201501
  2. LANTUS SOLOSTAR [Suspect]
     Active Substance: INSULIN GLARGINE
     Indication: TYPE 2 DIABETES MELLITUS
     Dosage: PATIENT TOOK THREE SHOT OF 10 UNITS EACH DOSE:30 UNIT(S)
     Route: 065
     Dates: start: 201501
  3. NOVOLOG [Concomitant]
     Active Substance: INSULIN ASPART
     Indication: TYPE 2 DIABETES MELLITUS
     Dosage: DOSE:10 UNIT(S)

REACTIONS (5)
  - Acute kidney injury [Unknown]
  - Drug administration error [Unknown]
  - Cardiac failure congestive [Unknown]
  - Blood glucose increased [Unknown]
  - Atrial fibrillation [Unknown]

NARRATIVE: CASE EVENT DATE: 2015
